FAERS Safety Report 25117129 (Version 2)
Quarter: 2025Q1

REPORT INFORMATION
  Report Type: Report from Study
  Country: US (occurrence: US)
  Receive Date: 20250325
  Receipt Date: 20250331
  Transmission Date: 20250408
  Serious: Yes (Hospitalization, Other)
  Sender: JAZZ
  Company Number: US-JAZZ PHARMACEUTICALS-2025-US-007474

PATIENT
  Sex: Female
  Weight: 19.048 kg

DRUGS (3)
  1. EPIDIOLEX [Suspect]
     Active Substance: CANNABIDIOL
     Indication: Product used for unknown indication
     Dates: start: 202412
  2. EPIDIOLEX [Suspect]
     Active Substance: CANNABIDIOL
     Dosage: 18.9 MILLIGRAM/KILOGRAM/DAY
     Route: 048
     Dates: start: 20241201
  3. EPIDIOLEX [Suspect]
     Active Substance: CANNABIDIOL
     Dosage: 1.8 MILLILITER, BID
     Route: 048

REACTIONS (1)
  - Epilepsy [Not Recovered/Not Resolved]
